FAERS Safety Report 5350125-1 (Version None)
Quarter: 2007Q2

REPORT INFORMATION
  Report Type: 
  Country: None (occurrence: None)
  Receive Date: 20070607
  Receipt Date: 20070605
  Transmission Date: 20071010
  Serious: Yes (Other)
  Sender: FDA-Public Use
  Company Number: GB-MERCK-0706GBR00019

PATIENT
  Age: 55 Year
  Sex: Male
  Weight: 75 kg

DRUGS (3)
  1. ZOCOR [Suspect]
     Route: 048
  2. ATORVASTATIN [Concomitant]
     Route: 065
  3. FLUOXETINE [Concomitant]
     Route: 065

REACTIONS (2)
  - CLONIC CONVULSION [None]
  - PARTIAL SEIZURES [None]
